FAERS Safety Report 21219049 (Version 2)
Quarter: 2022Q3

REPORT INFORMATION
  Report Type: Report from Study
  Country: JP (occurrence: JP)
  Receive Date: 20220816
  Receipt Date: 20220817
  Transmission Date: 20221027
  Serious: Yes (Hospitalization)
  Sender: FDA-Public Use
  Company Number: JP-SA-2021SA261010

PATIENT
  Age: 2 Year
  Sex: Male
  Weight: 12.9 kg

DRUGS (17)
  1. DUPILUMAB [Suspect]
     Active Substance: DUPILUMAB
     Indication: Dermatitis atopic
     Dosage: UNK
     Route: 058
  2. EPINASTINE HYDROCHLORIDE [Concomitant]
     Active Substance: EPINASTINE HYDROCHLORIDE
     Indication: Food allergy
     Dosage: 6 MG, PRN
     Route: 048
     Dates: start: 20190918, end: 20200705
  3. EPINASTINE HYDROCHLORIDE [Concomitant]
     Active Substance: EPINASTINE HYDROCHLORIDE
     Dosage: 7 MG, PRN
     Route: 048
     Dates: start: 20200706, end: 202107
  4. BETAMETHASONE DIPROPIONATE [Concomitant]
     Active Substance: BETAMETHASONE DIPROPIONATE
     Indication: Dermatitis atopic
     Dosage: 3.34 G, QD
     Route: 061
     Dates: start: 20180226, end: 20200216
  5. BETAMETHASONE DIPROPIONATE [Concomitant]
     Active Substance: BETAMETHASONE DIPROPIONATE
     Dosage: 1.7 G, Q3D
     Route: 061
     Dates: start: 20200217, end: 20210907
  6. PROCATEROL HYDROCHLORIDE [Concomitant]
     Active Substance: PROCATEROL HYDROCHLORIDE
     Indication: Food allergy
     Dosage: 15 UG, PRN
     Route: 055
     Dates: start: 20190918, end: 20200705
  7. PROCATEROL HYDROCHLORIDE [Concomitant]
     Active Substance: PROCATEROL HYDROCHLORIDE
     Dosage: 18 UG, PRN
     Route: 055
     Dates: start: 20200706
  8. BETAMETHASONE BUTYRATE PROPIONATE [Concomitant]
     Active Substance: BETAMETHASONE BUTYRATE PROPIONATE
     Indication: Dermatitis atopic
     Dosage: 0.5 G, Q3D
     Route: 061
     Dates: start: 20180416, end: 20191106
  9. BETAMETHASONE BUTYRATE PROPIONATE [Concomitant]
     Active Substance: BETAMETHASONE BUTYRATE PROPIONATE
     Dosage: 0.5 G, BIW
     Route: 061
     Dates: start: 20191107, end: 20201108
  10. PETROLATUM [Concomitant]
     Active Substance: PETROLATUM
     Indication: Dermatitis atopic
     Dosage: 4 G, QD
     Route: 061
     Dates: start: 20181220
  11. HEPARINOID [Concomitant]
     Indication: Dermatitis atopic
     Dosage: 3.34 G, QD
     Route: 061
     Dates: start: 20180226, end: 20200216
  12. HEPARINOID [Concomitant]
     Dosage: 1.7 G, Q3D
     Route: 061
     Dates: start: 20200217, end: 20210907
  13. DIFLORASONE DIACETATE [Concomitant]
     Active Substance: DIFLORASONE DIACETATE
     Indication: Dermatitis atopic
     Dosage: 0.3 G, BID
     Route: 061
     Dates: start: 20191107, end: 20200216
  14. DIFLORASONE DIACETATE [Concomitant]
     Active Substance: DIFLORASONE DIACETATE
     Dosage: 0.3 G, QD
     Route: 061
     Dates: start: 20200217, end: 20200706
  15. TACROLIMUS [Concomitant]
     Active Substance: TACROLIMUS
     Indication: Dermatitis atopic
     Dosage: 0.1 G, QD
     Route: 061
     Dates: start: 20181220, end: 20200216
  16. TACROLIMUS [Concomitant]
     Active Substance: TACROLIMUS
     Dosage: 0.1 G, BIW
     Route: 061
     Dates: start: 20200217, end: 20210907
  17. MONTELUKAST SODIUM [Concomitant]
     Active Substance: MONTELUKAST SODIUM
     Indication: Asthma
     Dosage: 4 MG, QD
     Route: 048
     Dates: start: 20190318, end: 202103

REACTIONS (2)
  - Food allergy [Recovered/Resolved]
  - Food allergy [Recovered/Resolved]

NARRATIVE: CASE EVENT DATE: 20200414
